FAERS Safety Report 19366602 (Version 1)
Quarter: 2021Q2

REPORT INFORMATION
  Report Type: Spontaneous
  Country: US (occurrence: US)
  Receive Date: 20210603
  Receipt Date: 20210603
  Transmission Date: 20210717
  Serious: No
  Sender: FDA-Public Use
  Company Number: US-CELGENEUS-USA-20210507567

PATIENT
  Age: 77 Year
  Sex: Female

DRUGS (8)
  1. ESCITALOPRAM [Concomitant]
     Active Substance: ESCITALOPRAM OXALATE
     Indication: ANXIETY
     Route: 048
     Dates: start: 201910
  2. REVLIMID [Suspect]
     Active Substance: LENALIDOMIDE
     Indication: MYELODYSPLASTIC SYNDROME
     Dosage: 5 MILLIGRAM
     Route: 048
     Dates: start: 20210111
  3. FOLBIC [Concomitant]
     Active Substance: CYANOCOBALAMIN\FOLIC ACID\PYRIDOXINE
     Indication: VITAMIN SUPPLEMENTATION
     Route: 048
     Dates: start: 201911
  4. TRAMADOL. [Concomitant]
     Active Substance: TRAMADOL
     Indication: PAIN
     Dosage: 50 MILLIGRAM
     Route: 048
     Dates: start: 202011
  5. REVLIMID [Suspect]
     Active Substance: LENALIDOMIDE
     Indication: REFRACTORY ANAEMIA WITH RINGED SIDEROBLASTS
     Dosage: 2.5 MILLIGRAM
     Route: 048
     Dates: start: 202105
  6. NORCO [Concomitant]
     Active Substance: ACETAMINOPHEN\HYDROCODONE BITARTRATE
     Indication: PAIN
     Dosage: 5/325 1?2 TAB Q4H PP
     Route: 048
     Dates: start: 202011
  7. LORAZEPAM. [Concomitant]
     Active Substance: LORAZEPAM
     Indication: ANXIETY
     Dosage: 3 MILLIGRAM
     Route: 048
     Dates: start: 201911
  8. KCL [Concomitant]
     Active Substance: POTASSIUM CHLORIDE
     Indication: HYPERKALAEMIA
     Dosage: 10 MILLIEQUIVALENTS
     Route: 048
     Dates: start: 202103

REACTIONS (1)
  - Platelet count decreased [Recovered/Resolved]

NARRATIVE: CASE EVENT DATE: 202103
